FAERS Safety Report 8116566-4 (Version None)
Quarter: 2012Q1

REPORT INFORMATION
  Report Type: 
  Country: None (occurrence: None)
  Receive Date: 20120206
  Receipt Date: 20120128
  Transmission Date: 20120608
  Serious: Yes (Hospitalization)
  Sender: FDA-Public Use
  Company Number: US-BAYER-201040541NA

PATIENT
  Age: 18 Year
  Sex: Female
  Weight: 72.562 kg

DRUGS (3)
  1. NYQUIL [Concomitant]
     Dosage: UNK
     Dates: start: 20040511
  2. ALIMENTARY TRACT AND METABOLISM [Concomitant]
     Dosage: UNK
     Dates: start: 20040511
  3. YASMIN [Suspect]
     Indication: CONTRACEPTION
     Dosage: UNK
     Route: 048
     Dates: start: 20020601, end: 20050701

REACTIONS (9)
  - BILE DUCT STONE [None]
  - MUSCLE SPASMS [None]
  - DEHYDRATION [None]
  - PAIN [None]
  - ABDOMINAL DISCOMFORT [None]
  - VOMITING [None]
  - GALLBLADDER DISORDER [None]
  - CHOLECYSTITIS ACUTE [None]
  - IMMOBILE [None]
